FAERS Safety Report 7280750-2 (Version None)
Quarter: 2011Q1

REPORT INFORMATION
  Report Type: 
  Country: None (occurrence: None)
  Receive Date: 20110203
  Receipt Date: 20110203
  Transmission Date: 20110831
  Serious: Yes (Other)
  Sender: FDA-Public Use
  Company Number: None

PATIENT
  Age: 58 Year
  Sex: Female
  Weight: 62.5964 kg

DRUGS (1)
  1. CARVEDILOL [Suspect]
     Indication: HYPERTENSION
     Dosage: 6.25MG TAB TWICE DAILY PO
     Route: 048
     Dates: start: 20110113, end: 20110122

REACTIONS (2)
  - URTICARIA [None]
  - PRURITUS [None]
